FAERS Safety Report 7743978-0 (Version None)
Quarter: 2011Q3

REPORT INFORMATION
  Report Type: 
  Country: None (occurrence: None)
  Receive Date: 20110912
  Receipt Date: 20110830
  Transmission Date: 20111222
  Serious: No
  Sender: FDA-Public Use
  Company Number: US-B.I. PHARMACEUTICALS,INC./RIDGEFIELD-2011-BP-21160BP

PATIENT
  Age: 71 Year
  Sex: Male

DRUGS (12)
  1. PRADAXA [Suspect]
     Indication: ATRIAL FIBRILLATION
     Dosage: 300 MG
     Route: 048
     Dates: start: 20110803, end: 20110817
  2. TRILIPIX [Concomitant]
     Indication: BLOOD CHOLESTEROL INCREASED
  3. TRACLEER [Concomitant]
     Indication: PULMONARY HYPERTENSION
  4. LOVAZA [Concomitant]
     Indication: BLOOD TRIGLYCERIDES INCREASED
  5. COLCHICINE [Concomitant]
     Indication: GOUT
  6. GABAPENTIN [Concomitant]
  7. GLIMEPIRIDE [Concomitant]
     Indication: DIABETES MELLITUS
  8. PRADAXA [Suspect]
     Dosage: 300 MG
     Route: 048
     Dates: start: 20110820
  9. LISINOPRIL [Concomitant]
     Indication: HYPERTENSION
  10. COREG [Concomitant]
     Indication: HYPERTENSION
  11. LASIX [Concomitant]
     Indication: PULMONARY HYPERTENSION
  12. JANUMET [Concomitant]
     Indication: DIABETES MELLITUS

REACTIONS (2)
  - HAEMATOCHEZIA [None]
  - BLOOD GLUCOSE INCREASED [None]
